APPROVED DRUG PRODUCT: DISOBROM
Active Ingredient: DEXBROMPHENIRAMINE MALEATE; PSEUDOEPHEDRINE SULFATE
Strength: 6MG;120MG
Dosage Form/Route: TABLET, EXTENDED RELEASE;ORAL
Application: A070770 | Product #001
Applicant: SANDOZ INC
Approved: Sep 30, 1991 | RLD: No | RS: No | Type: DISCN